FAERS Safety Report 6338517-5 (Version None)
Quarter: 2009Q3

REPORT INFORMATION
  Report Type: 
  Country: None (occurrence: None)
  Receive Date: 20090901
  Receipt Date: 20090820
  Transmission Date: 20100115
  Serious: Yes (Hospitalization)
  Sender: FDA-Public Use
  Company Number: 230258K09AUS

PATIENT
  Age: 52 Year
  Sex: Female

DRUGS (1)
  1. REBIF [Suspect]
     Indication: MULTIPLE SCLEROSIS
     Dosage: 0.25, 3 IN 1 WEEKS, SUBCUTANEOUS
     Route: 058
     Dates: start: 20090727

REACTIONS (3)
  - CONSTIPATION [None]
  - LIVER FUNCTION TEST ABNORMAL [None]
  - VITAMIN D DECREASED [None]
